FAERS Safety Report 9792654 (Version 1)
Quarter: 2014Q1

REPORT INFORMATION
  Report Type: Spontaneous
  Country: US (occurrence: US)
  Receive Date: 20140102
  Receipt Date: 20140102
  Transmission Date: 20141002
  Serious: No
  Sender: FDA-Public Use
  Company Number: US-SA-2013SA102455

PATIENT
  Age: 58 Year
  Sex: Female
  Weight: 69.85 kg

DRUGS (6)
  1. AUBAGIO [Suspect]
     Route: 048
  2. LOPERAMIDE [Concomitant]
     Route: 048
  3. WELLBUTRIN [Concomitant]
     Route: 048
  4. RITALIN [Concomitant]
     Route: 048
  5. PROVIGIL [Concomitant]
     Route: 048
  6. EVENING PRIMROSE OIL [Concomitant]
     Route: 048

REACTIONS (3)
  - Vitamin D decreased [Unknown]
  - Pollakiuria [Unknown]
  - Diarrhoea [Unknown]
